FAERS Safety Report 8179700-6 (Version None)
Quarter: 2012Q1

REPORT INFORMATION
  Report Type: 
  Country: None (occurrence: None)
  Receive Date: 20120302
  Receipt Date: 20120221
  Transmission Date: 20120608
  Serious: Yes (Hospitalization, Other)
  Sender: FDA-Public Use
  Company Number: US-ELI_LILLY_AND_COMPANY-US201011006126

PATIENT
  Sex: Female

DRUGS (11)
  1. ASPIRIN [Concomitant]
  2. FOLIC ACID [Concomitant]
  3. FORTEO [Suspect]
     Dosage: 20 UG, DAILY (1/D)
     Route: 065
  4. FORTEO [Suspect]
     Dosage: 20 UG, QD
  5. VITAMINS NOS [Concomitant]
  6. VITAMIN D [Concomitant]
     Dosage: UNK, 2/M
  7. FORTEO [Suspect]
     Indication: OSTEOPOROSIS
     Dosage: 20 UG, DAILY (1/D)
     Route: 065
     Dates: start: 20101021
  8. CALTRATE                           /00751519/ [Concomitant]
  9. VITAMIN B-12 [Concomitant]
     Dosage: UNK, MONTHLY (1/M)
  10. ZOCOR [Concomitant]
  11. CARVEDILOL [Concomitant]
     Indication: BLOOD PRESSURE ABNORMAL

REACTIONS (10)
  - INJECTION SITE ERYTHEMA [None]
  - INJECTION SITE HAEMATOMA [None]
  - WEIGHT DECREASED [None]
  - DIVERTICULITIS [None]
  - ASTHENIA [None]
  - DRUG DOSE OMISSION [None]
  - FALL [None]
  - CARDIAC PACEMAKER INSERTION [None]
  - UNDERDOSE [None]
  - FATIGUE [None]
